FAERS Safety Report 25726814 (Version 2)
Quarter: 2025Q3

REPORT INFORMATION
  Report Type: Spontaneous
  Country: US (occurrence: US)
  Receive Date: 20250826
  Receipt Date: 20250903
  Transmission Date: 20251021
  Serious: Yes (Hospitalization)
  Sender: PFIZER
  Company Number: US-PFIZER INC-202500167969

PATIENT
  Age: 77 Year
  Sex: Female
  Weight: 76.2 kg

DRUGS (3)
  1. PAXLOVID [Interacting]
     Active Substance: NIRMATRELVIR\RITONAVIR
     Indication: COVID-19 treatment
     Dates: start: 20250811, end: 20250815
  2. BUSPAR [Interacting]
     Active Substance: BUSPIRONE HYDROCHLORIDE
     Dosage: 30 MG, 2X/DAY
     Dates: end: 20250810
  3. BUSPAR [Interacting]
     Active Substance: BUSPIRONE HYDROCHLORIDE
     Dates: start: 20250817

REACTIONS (3)
  - Drug interaction [Unknown]
  - Seizure [Unknown]
  - Petit mal epilepsy [Unknown]

NARRATIVE: CASE EVENT DATE: 20250817
